FAERS Safety Report 16673134 (Version 1)
Quarter: 2019Q3

REPORT INFORMATION
  Report Type: Spontaneous
  Country: US (occurrence: US)
  Receive Date: 20190805
  Receipt Date: 20190805
  Transmission Date: 20191004
  Serious: Yes (Hospitalization)
  Sender: FDA-Public Use
  Company Number: None

PATIENT
  Age: 56 Year
  Sex: Female

DRUGS (9)
  1. COSENTYX [Suspect]
     Active Substance: SECUKINUMAB
     Indication: PSORIATIC ARTHROPATHY
     Dosage: ?          OTHER FREQUENCY:EVERY 4 WEEKS;?
     Route: 058
     Dates: start: 20180115
  2. LYRICA CAP 50 MG [Concomitant]
  3. TRAMADOL HCL TAB 50 MG [Concomitant]
  4. OXYCODONE/APAP 7.5-325 [Concomitant]
  5. PAROXETINE TAB 30 MG [Concomitant]
  6. CELECOXIB CAP 200 MG [Concomitant]
  7. DIAZEPAM TAB 5 MG [Concomitant]
  8. METHOCARBAM TAB 500 MG [Concomitant]
  9. ESOMEPRA MAG CAP 20 MG DR [Concomitant]

REACTIONS (2)
  - Therapy cessation [None]
  - Disease complication [None]
